FAERS Safety Report 5394674-9 (Version None)
Quarter: 2007Q3

REPORT INFORMATION
  Report Type: 
  Country: None (occurrence: None)
  Receive Date: 20070723
  Receipt Date: 20070712
  Transmission Date: 20080115
  Serious: Yes (Disabling)
  Sender: FDA-Public Use
  Company Number: US-GILEAD-2007-0012612

PATIENT
  Sex: Male

DRUGS (3)
  1. ATRIPLA [Suspect]
     Indication: HIV INFECTION
  2. ALLEGRA D 24 HOUR [Concomitant]
     Indication: RHINITIS ALLERGIC
  3. FLONASE [Concomitant]
     Indication: RHINITIS ALLERGIC

REACTIONS (4)
  - ALOPECIA AREATA [None]
  - ERYTHEMA [None]
  - OPTIC NEURITIS [None]
  - SKIN EXFOLIATION [None]
